FAERS Safety Report 14910365 (Version 2)
Quarter: 2018Q2

REPORT INFORMATION
  Report Type: Not Available
  Country: US (occurrence: US)
  Receive Date: 20180517
  Receipt Date: 20180607
  Transmission Date: 20180711
  Serious: No
  Sender: FDA-Public Use
  Company Number: US-NEUROCRINE BIOSCIENCES INC.-2018NBI01329

PATIENT
  Sex: Male

DRUGS (4)
  1. SONATA [Concomitant]
     Active Substance: ZALEPLON
  2. GABAPENTIN. [Concomitant]
     Active Substance: GABAPENTIN
  3. INGREZZA [Suspect]
     Active Substance: VALBENAZINE
     Indication: PRODUCT USED FOR UNKNOWN INDICATION
     Route: 048
     Dates: start: 20180413, end: 20180420
  4. INGREZZA [Suspect]
     Active Substance: VALBENAZINE
     Route: 048
     Dates: start: 20180421, end: 20180425

REACTIONS (5)
  - Dyskinesia [Unknown]
  - Drug ineffective [None]
  - Emotional disorder [Unknown]
  - Sedation [Unknown]
  - Insomnia [Unknown]

NARRATIVE: CASE EVENT DATE: 2018
